FAERS Safety Report 6973965-1 (Version None)
Quarter: 2010Q3

REPORT INFORMATION
  Report Type: 
  Country: None (occurrence: None)
  Receive Date: 20100909
  Receipt Date: 20100830
  Transmission Date: 20110219
  Serious: Yes (Death)
  Sender: FDA-Public Use
  Company Number: GXKR2010SE09897

PATIENT
  Age: 32 Year
  Sex: Male

DRUGS (7)
  1. CITALOPRAM HYDROBROMIDE [Suspect]
     Route: 065
  2. PARACETAMOL (NGX) [Suspect]
     Route: 065
  3. MORPHINE (NGX) [Suspect]
     Route: 065
  4. HEROIN [Suspect]
     Route: 065
  5. COCAINE [Suspect]
     Route: 065
  6. TETRAHYDROCANNABINOL [Suspect]
  7. AMFETAMINE [Suspect]
     Route: 065

REACTIONS (3)
  - DEATH [None]
  - DRUG ABUSE [None]
  - THERAPEUTIC AGENT TOXICITY [None]
